FAERS Safety Report 9476605 (Version 1)
Quarter: 2013Q3

REPORT INFORMATION
  Report Type: Spontaneous
  Country: NO (occurrence: NO)
  Receive Date: 20130826
  Receipt Date: 20130826
  Transmission Date: 20140515
  Serious: Yes (Other)
  Sender: FDA-Public Use
  Company Number: NO-UCBSA-095956

PATIENT
  Age: 25 Year
  Sex: Female

DRUGS (1)
  1. KEPPRA [Suspect]
     Indication: EPILEPSY
     Dosage: TOTAL DAILY DOSE-1500MG
     Route: 048
     Dates: start: 2006

REACTIONS (2)
  - Premature delivery [Unknown]
  - Pregnancy [Recovered/Resolved]
